FAERS Safety Report 12507352 (Version 1)
Quarter: 2016Q2

REPORT INFORMATION
  Report Type: Report from Study
  Country: US (occurrence: US)
  Receive Date: 20160629
  Receipt Date: 20160629
  Transmission Date: 20160815
  Serious: Yes (Other)
  Sender: FDA-Public Use
  Company Number: US-ROCHE-1781492

PATIENT
  Sex: Female

DRUGS (1)
  1. XOLAIR [Suspect]
     Active Substance: OMALIZUMAB
     Indication: ASTHMA
     Dosage: LAST OMALIZUMAB INJECTION WAS RECEIVED ON 07/JAN/2009
     Route: 058

REACTIONS (3)
  - Anaphylactic reaction [Unknown]
  - Asthma [Unknown]
  - Malaise [Unknown]
